FAERS Safety Report 6671130-9 (Version None)
Quarter: 2010Q2

REPORT INFORMATION
  Report Type: 
  Country: None (occurrence: None)
  Receive Date: 20100407
  Receipt Date: 20100401
  Transmission Date: 20101027
  Serious: Yes (Hospitalization)
  Sender: FDA-Public Use
  Company Number: FR-ASTRAZENECA-2010SE12003

PATIENT
  Age: 88 Year
  Sex: Female

DRUGS (5)
  1. TENORMIN [Suspect]
     Indication: HYPERTENSION
     Route: 048
     Dates: end: 20100201
  2. TENORMIN [Suspect]
     Route: 048
     Dates: end: 20100301
  3. ARICEPT [Suspect]
     Indication: DEMENTIA
     Route: 048
     Dates: start: 20100124, end: 20100224
  4. ELISOR [Suspect]
     Route: 048
     Dates: end: 20100301
  5. LEVOTHYROX [Suspect]
     Indication: HYPOTHYROIDISM
     Route: 048
     Dates: start: 20091201

REACTIONS (6)
  - ANKLE FRACTURE [None]
  - CONVULSION [None]
  - DISORIENTATION [None]
  - FALL [None]
  - HEAD INJURY [None]
  - LOSS OF CONSCIOUSNESS [None]
